FAERS Safety Report 9293070 (Version 1)
Quarter: 2013Q2

REPORT INFORMATION
  Report Type: Spontaneous
  Country: US (occurrence: None)
  Receive Date: 20130515
  Receipt Date: 20130515
  Transmission Date: 20140414
  Serious: Yes (Hospitalization)
  Sender: FDA-Public Use
  Company Number: None

PATIENT
  Age: 61 Year
  Sex: Male
  Weight: 58.3 kg

DRUGS (2)
  1. VANCOMYCIN [Suspect]
     Indication: PNEUMONIA STAPHYLOCOCCAL
     Dosage: 750 TO 1500MG OTHER FREQUENCY IV
     Route: 042
     Dates: start: 20121011, end: 20121022
  2. CLINDAMYCIN/DEXTROSE [Suspect]
     Indication: PNEUMONIA STAPHYLOCOCCAL
     Route: 042
     Dates: start: 20121018, end: 20121031

REACTIONS (13)
  - Haemoptysis [None]
  - Chest pain [None]
  - Leukocytosis [None]
  - Rash maculo-papular [None]
  - Swelling face [None]
  - Pyrexia [None]
  - Diarrhoea [None]
  - Enterobacter test positive [None]
  - Sputum culture positive [None]
  - Clostridium difficile colitis [None]
  - Pulmonary oedema [None]
  - Fluid overload [None]
  - Eosinophilia [None]
